FAERS Safety Report 7517910-9 (Version None)
Quarter: 2011Q2

REPORT INFORMATION
  Report Type: 
  Country: None (occurrence: None)
  Receive Date: 20110527
  Receipt Date: 20110527
  Transmission Date: 20111010
  Serious: Yes (Death)
  Sender: FDA-Public Use
  Company Number: None

PATIENT
  Age: 13 Year
  Sex: Male
  Weight: 94 kg

DRUGS (9)
  1. MULTI-VITAMIN [Concomitant]
  2. ROXINOL [Concomitant]
  3. TEMSIROLIMUS [Suspect]
     Indication: GLIOMA
     Dosage: 35 MG/M2 IV WEEKLY
     Route: 042
     Dates: start: 20110509
  4. TEMSIROLIMUS [Suspect]
     Indication: GLIOMA
     Dosage: 35 MG/M2 IV WEEKLY
     Route: 042
     Dates: start: 20110516
  5. VALPROIC ACID [Concomitant]
  6. EMLA [Concomitant]
  7. ATIVAN [Concomitant]
  8. XENADERM [Concomitant]
  9. ZOFRAN [Concomitant]

REACTIONS (1)
  - BARIUM SWALLOW ABNORMAL [None]
